FAERS Safety Report 23030783 (Version 2)
Quarter: 2023Q4

REPORT INFORMATION
  Report Type: Spontaneous
  Country: US (occurrence: US)
  Receive Date: 20231005
  Receipt Date: 20231109
  Transmission Date: 20240110
  Serious: No
  Sender: FDA-Public Use
  Company Number: US-BRISTOL-MYERS SQUIBB COMPANY-2023-140681

PATIENT
  Age: 76 Year
  Sex: Male
  Weight: 107.05 kg

DRUGS (1)
  1. REVLIMID [Suspect]
     Active Substance: LENALIDOMIDE
     Indication: Myelodysplastic syndrome
     Dosage: 2WKSON,1WKOFF
     Route: 048

REACTIONS (4)
  - Platelet count decreased [Unknown]
  - Haemoglobin decreased [Unknown]
  - Off label use [Unknown]
  - Feeling abnormal [Unknown]
